FAERS Safety Report 20224315 (Version 2)
Quarter: 2022Q3

REPORT INFORMATION
  Report Type: Spontaneous
  Country: JP (occurrence: JP)
  Receive Date: 20211223
  Receipt Date: 20220802
  Transmission Date: 20221026
  Serious: Yes (Other)
  Sender: FDA-Public Use
  Company Number: JP-COLLEGIUM PHARMACEUTICAL, INC.-2021CGM01288

PATIENT

DRUGS (6)
  1. NUCYNTA ER [Suspect]
     Active Substance: TAPENTADOL HYDROCHLORIDE
     Indication: Cancer pain
     Dosage: 250 MG, 1X/DAY
     Route: 048
  2. NUCYNTA ER [Suspect]
     Active Substance: TAPENTADOL HYDROCHLORIDE
     Dosage: 300 MG, 1X/DAY
     Route: 048
  3. NUCYNTA ER [Suspect]
     Active Substance: TAPENTADOL HYDROCHLORIDE
     Dosage: 350 MG, 1X/DAY
     Route: 048
  4. FENTANYL CITRATE [Concomitant]
     Active Substance: FENTANYL CITRATE
     Indication: Abdominal pain
     Dosage: INJECTION
     Route: 065
  5. FENTANYL CITRATE [Concomitant]
     Active Substance: FENTANYL CITRATE
  6. RISPERIDONE [Concomitant]
     Active Substance: RISPERIDONE
     Indication: Abdominal pain

REACTIONS (1)
  - Delirium [Unknown]
